FAERS Safety Report 10732214 (Version 2)
Quarter: 2015Q4

REPORT INFORMATION
  Report Type: Report from Study
  Country: DE (occurrence: DE)
  Receive Date: 20150123
  Receipt Date: 20151222
  Transmission Date: 20160304
  Serious: Yes (Hospitalization)
  Sender: FDA-Public Use
  Company Number: PHHY2013DE150273

PATIENT
  Age: 83 Year
  Sex: Male
  Weight: 71 kg

DRUGS (30)
  1. SEEBRI BREEZHALER [Suspect]
     Active Substance: GLYCOPYRROLATE
     Indication: CHRONIC OBSTRUCTIVE PULMONARY DISEASE
     Dosage: 44 UG, QD
     Route: 055
     Dates: start: 20130826, end: 201311
  2. L-THYROXIN BETA [Concomitant]
     Dosage: 75 UG, UNK
     Route: 065
  3. L-THYROXIN BETA [Concomitant]
     Dosage: 200 UG, UNK
     Route: 065
  4. MOLSIDOMIN AL [Concomitant]
     Indication: PRODUCT USED FOR UNKNOWN INDICATION
     Dosage: 8 MG, QD
     Route: 065
  5. TORASEMID AL [Concomitant]
     Dosage: 5 MG, UNK
     Route: 065
  6. TRIAMTEREN COMP [Concomitant]
     Indication: PRODUCT USED FOR UNKNOWN INDICATION
     Dosage: UNK, (50/25 MG)
     Route: 065
  7. VERAPAMIL AL [Concomitant]
     Indication: PRODUCT USED FOR UNKNOWN INDICATION
     Dosage: 240 OT, UNK
     Route: 065
  8. ACC [Concomitant]
     Active Substance: ACETYLCYSTEINE
     Indication: PRODUCT USED FOR UNKNOWN INDICATION
     Dosage: UNK
     Route: 065
  9. L-THYROXIN BETA [Concomitant]
     Dosage: 100 UG, UNK
     Route: 065
  10. L-THYROXIN BETA [Concomitant]
     Dosage: 175 UG, UNK
     Route: 065
  11. TORASEMID AL [Concomitant]
     Indication: PRODUCT USED FOR UNKNOWN INDICATION
     Dosage: UNK
     Route: 065
     Dates: start: 201311
  12. AURORIX [Concomitant]
     Active Substance: MOCLOBEMIDE
     Indication: PRODUCT USED FOR UNKNOWN INDICATION
     Dosage: UNK
     Route: 065
  13. L-THYROXIN BETA [Concomitant]
     Dosage: 50 UG, UNK
     Route: 065
  14. L-THYROXIN BETA [Concomitant]
     Dosage: 125 UG, UNK
     Route: 065
  15. SIMVASTATIN AL [Concomitant]
     Indication: PRODUCT USED FOR UNKNOWN INDICATION
     Dosage: UNK UNK, QD
     Route: 065
  16. SIMVASTATIN REAL [Concomitant]
     Active Substance: SIMVASTATIN
     Dosage: 40 MG, UNK
     Route: 065
  17. FORAIR                             /01420901/ [Concomitant]
     Indication: PRODUCT USED FOR UNKNOWN INDICATION
     Dosage: 12 UG, UNK
     Route: 065
  18. L-THYROXIN BETA [Concomitant]
     Indication: THYROID OPERATION
     Dosage: 25 UG, UNK
     Route: 065
  19. LACTULOSE. [Concomitant]
     Active Substance: LACTULOSE
     Indication: PRODUCT USED FOR UNKNOWN INDICATION
     Dosage: UNK
     Route: 065
  20. PREDNISOLON GALEN [Concomitant]
     Indication: PRODUCT USED FOR UNKNOWN INDICATION
     Dosage: UNK
     Route: 065
  21. TAMSULOSIN AL [Concomitant]
     Indication: PRODUCT USED FOR UNKNOWN INDICATION
     Dosage: 0.4 MG, QD
     Route: 065
  22. TORASEMID AL [Concomitant]
     Dosage: 10 MG, UNK
     Route: 065
  23. MUCOSOLVAN [Concomitant]
     Active Substance: AMBROXOL HYDROCHLORIDE
     Indication: PRODUCT USED FOR UNKNOWN INDICATION
     Dosage: UNK (30 MG/2 ML)
     Route: 065
  24. L-THYROXIN BETA [Concomitant]
     Dosage: 150 UG, UNK
     Route: 065
  25. SIMVASTATIN ACCORD [Concomitant]
     Active Substance: SIMVASTATIN
     Indication: PRODUCT USED FOR UNKNOWN INDICATION
     Dosage: UNK
     Route: 065
  26. TORASEMID AL [Concomitant]
     Dosage: 20 MG, UNK
     Route: 065
  27. QVA149 [Suspect]
     Active Substance: INVESTIGATIONAL PRODUCT
     Indication: CHRONIC OBSTRUCTIVE PULMONARY DISEASE
     Dosage: UNK UNK, QD
     Route: 055
  28. SALBUTAMOL CT [Concomitant]
     Indication: PRODUCT USED FOR UNKNOWN INDICATION
     Dosage: UNK
     Route: 065
  29. BISOPROLOL [Concomitant]
     Active Substance: BISOPROLOL
     Indication: PRODUCT USED FOR UNKNOWN INDICATION
     Dosage: UNK
     Route: 065
  30. SIMVASTATIN REAL [Concomitant]
     Active Substance: SIMVASTATIN
     Indication: PRODUCT USED FOR UNKNOWN INDICATION
     Dosage: 20 MG, UNK
     Route: 065

REACTIONS (8)
  - Wheezing [Unknown]
  - Chest pain [Unknown]
  - Dyspnoea at rest [Unknown]
  - Chest discomfort [Unknown]
  - Chronic obstructive pulmonary disease [Not Recovered/Not Resolved]
  - Prolonged expiration [Unknown]
  - Chronic obstructive pulmonary disease [Recovered/Resolved]
  - Grunting [Unknown]

NARRATIVE: CASE EVENT DATE: 20131118
